FAERS Safety Report 8914662 (Version 2)
Quarter: 2013Q2

REPORT INFORMATION
  Report Type: Report from Study
  Country: CA (occurrence: CA)
  Receive Date: 20121119
  Receipt Date: 20130507
  Transmission Date: 20140414
  Serious: Yes (Other)
  Sender: FDA-Public Use
  Company Number: CA-UCBSA-068926

PATIENT
  Age: 58 Year
  Sex: Female

DRUGS (12)
  1. CIMZIA [Suspect]
     Indication: RHEUMATOID ARTHRITIS
     Dosage: X 3 WEEKS
     Route: 058
     Dates: start: 20110404
  2. CIMZIA [Suspect]
     Indication: RHEUMATOID ARTHRITIS
     Route: 058
     Dates: end: 20120426
  3. ARAVA [Concomitant]
     Indication: RHEUMATOID ARTHRITIS
     Route: 048
  4. CELEBREX [Concomitant]
     Indication: RHEUMATOID ARTHRITIS
     Route: 048
  5. ELAVIL [Concomitant]
     Indication: FIBROMYALGIA
     Route: 048
  6. LYRICA [Concomitant]
     Indication: FIBROMYALGIA
     Route: 048
  7. ROBAXIN [Concomitant]
     Indication: FIBROMYALGIA
     Route: 048
  8. ASAPHEN [Concomitant]
     Route: 048
  9. TAMOXIFEN [Concomitant]
     Indication: BREAST CANCER
     Route: 048
  10. ATIVAN [Concomitant]
     Route: 048
  11. FENTANYL [Concomitant]
     Indication: PAIN
     Dosage: ROUTE-PATCHES
  12. DILAUDID [Concomitant]
     Indication: PAIN
     Route: 048

REACTIONS (1)
  - Clostridium difficile infection [Recovered/Resolved]
